FAERS Safety Report 4465360-4 (Version None)
Quarter: 2004Q3

REPORT INFORMATION
  Report Type: 
  Country: None (occurrence: None)
  Receive Date: 20040929
  Receipt Date: 20040909
  Transmission Date: 20050211
  Serious: Yes (Other)
  Sender: FDA-Public Use
  Company Number: USA040875916

PATIENT
  Age: 49 Year
  Sex: Female
  Weight: 61 kg

DRUGS (12)
  1. GEMZAR [Suspect]
     Indication: BREAST CANCER METASTATIC
     Dosage: 800 MG/M2 OTHER
     Dates: start: 20040524, end: 20040813
  2. NAVELBINE [Concomitant]
  3. ZOMETA [Concomitant]
  4. COMPAZINE (PROCHLORPERAZNE EDISYLATE) [Concomitant]
  5. COUMADIN [Concomitant]
  6. MORPHINE [Concomitant]
  7. DILAUDID (HYDROMORPONE HYDROCHLORIDE) [Concomitant]
  8. PHENERGAN (PROMETHAZINDE HYDROCHLORIDE) [Concomitant]
  9. ZANTAC [Concomitant]
  10. MAXALT [Concomitant]
  11. ATIVAN [Concomitant]
  12. AMERGE [Concomitant]

REACTIONS (16)
  - AREFLEXIA [None]
  - DRUG INEFFECTIVE [None]
  - EAR PAIN [None]
  - HYPOAESTHESIA [None]
  - LYMPHOEDEMA [None]
  - MASS [None]
  - METASTASES TO BONE [None]
  - METASTASES TO MENINGES [None]
  - MIGRAINE [None]
  - NERVE COMPRESSION [None]
  - NERVOUS SYSTEM DISORDER [None]
  - NEUTROPHIL COUNT DECREASED [None]
  - PARAESTHESIA [None]
  - SKIN TIGHTNESS [None]
  - TUMOUR MARKER INCREASED [None]
  - WHITE BLOOD CELL COUNT DECREASED [None]
